FAERS Safety Report 21120109 (Version 2)
Quarter: 2022Q3

REPORT INFORMATION
  Report Type: Report from Study
  Country: CA (occurrence: CA)
  Receive Date: 20220722
  Receipt Date: 20220812
  Transmission Date: 20221026
  Serious: No
  Sender: FDA-Public Use
  Company Number: CA-AMGEN-CANSL2022108805

PATIENT
  Age: 50 Year
  Sex: Female

DRUGS (1)
  1. NEULASTA [Suspect]
     Active Substance: PEGFILGRASTIM
     Indication: Product used for unknown indication
     Dosage: 6 MILLIGRAM, Q2WK
     Route: 065

REACTIONS (3)
  - Accidental exposure to product [Unknown]
  - Device physical property issue [Unknown]
  - Device issue [Unknown]

NARRATIVE: CASE EVENT DATE: 20220611
